FAERS Safety Report 20409897 (Version 1)
Quarter: 2022Q1

REPORT INFORMATION
  Report Type: Spontaneous
  Country: US (occurrence: US)
  Receive Date: 20220201
  Receipt Date: 20220201
  Transmission Date: 20220424
  Serious: No
  Sender: FDA-Public Use
  Company Number: US-drreddys-SPO/USA/22/0146251

PATIENT
  Age: 67 Year
  Sex: Male

DRUGS (1)
  1. ZENATANE [Suspect]
     Active Substance: ISOTRETINOIN
     Indication: Product used for unknown indication
     Dosage: RMA ISSUE DATE: 27 OCTOBER 2021 05:49:21 PM, 02 SEPTEMBER 2021 04:42:52 PM, 07 DECEMBER 2021 06:30:4

REACTIONS (2)
  - Blood cholesterol increased [Unknown]
  - Hepatic enzyme increased [Unknown]
